FAERS Safety Report 9185867 (Version 1)
Quarter: 2013Q1

REPORT INFORMATION
  Report Type: Spontaneous
  Country: US (occurrence: US)
  Receive Date: 20130325
  Receipt Date: 20130325
  Transmission Date: 20140127
  Serious: Yes (Other)
  Sender: FDA-Public Use
  Company Number: US-AMGEN-USASP2013017725

PATIENT
  Age: 75 Year
  Sex: Female

DRUGS (7)
  1. PROLIA [Suspect]
     Indication: PRODUCT USED FOR UNKNOWN INDICATION
     Dosage: UNK
     Dates: start: 20120914
  2. ARIMIDEX [Concomitant]
  3. AVAPRO [Concomitant]
  4. PROTONIX [Concomitant]
  5. PLAVIX [Concomitant]
  6. VITAMIN D /00107901/ [Concomitant]
  7. VITAMIN B12                        /00056201/ [Concomitant]

REACTIONS (3)
  - Ligament sprain [Unknown]
  - Groin pain [Not Recovered/Not Resolved]
  - Gait disturbance [Unknown]
